FAERS Safety Report 4395658-X (Version None)
Quarter: 2004Q3

REPORT INFORMATION
  Report Type: 
  Country: None (occurrence: None)
  Receive Date: 20040708
  Receipt Date: 20040628
  Transmission Date: 20050211
  Serious: Yes (Hospitalization)
  Sender: FDA-Public Use
  Company Number: 2004221437US

PATIENT
  Age: 85 Year
  Sex: Male
  Weight: 77.1 kg

DRUGS (4)
  1. DETROL [Suspect]
     Dates: start: 20040101
  2. ROFECOXIB (ROFECOXIB) TABLET [Suspect]
     Dosage: ORAL
     Route: 048
     Dates: start: 20040101
  3. LEVOXYL [Concomitant]
  4. MONOPRIL [Concomitant]

REACTIONS (6)
  - BLOOD POTASSIUM DECREASED [None]
  - BLOOD SODIUM DECREASED [None]
  - CONFUSIONAL STATE [None]
  - STOMACH DISCOMFORT [None]
  - VIRAL INFECTION [None]
  - VOMITING [None]
